FAERS Safety Report 5053274-0 (Version None)
Quarter: 2006Q3

REPORT INFORMATION
  Report Type: 
  Country: None (occurrence: None)
  Receive Date: 20060712
  Receipt Date: 20060630
  Transmission Date: 20061208
  Serious: Yes (Death, Hospitalization)
  Sender: FDA-Public Use
  Company Number: THYR-10328

PATIENT
  Age: 50 Year
  Sex: Male

DRUGS (6)
  1. THYROGEN [Suspect]
     Indication: DIAGNOSTIC PROCEDURE
     Dosage: 0.9 MG ONCE IM
     Route: 030
     Dates: start: 20060619, end: 20060619
  2. SYNTHROID [Concomitant]
  3. PANTOPRAZOLE SODIUM [Concomitant]
  4. METFORMIN [Concomitant]
  5. DILTIAZERN [Concomitant]
  6. ATACAND [Concomitant]

REACTIONS (18)
  - ANION GAP INCREASED [None]
  - ASTHENIA [None]
  - BRADYCARDIA [None]
  - CARDIO-RESPIRATORY ARREST [None]
  - DEHYDRATION [None]
  - DIARRHOEA [None]
  - HYPERGLYCAEMIA [None]
  - HYPERKALAEMIA [None]
  - HYPOTENSION [None]
  - LETHARGY [None]
  - LOSS OF CONSCIOUSNESS [None]
  - MALAISE [None]
  - METABOLIC ACIDOSIS [None]
  - MYOCARDIAL ISCHAEMIA [None]
  - ORAL INTAKE REDUCED [None]
  - RENAL FAILURE ACUTE [None]
  - SINUS TACHYCARDIA [None]
  - VOMITING [None]
